FAERS Safety Report 10245416 (Version 1)
Quarter: 2014Q2

REPORT INFORMATION
  Report Type: Spontaneous
  Country: DE (occurrence: DE)
  Receive Date: 20140618
  Receipt Date: 20140618
  Transmission Date: 20141212
  Serious: Yes (Other)
  Sender: FDA-Public Use
  Company Number: DE-GILEAD-2014-0102635

PATIENT
  Sex: Male

DRUGS (3)
  1. SOVALDI [Suspect]
     Indication: HEPATITIS C
     Route: 065
  2. INTERFERON [Concomitant]
     Route: 065
  3. RIBAVIRINE [Concomitant]
     Route: 065

REACTIONS (5)
  - Viral load increased [Unknown]
  - Drug ineffective [Unknown]
  - Laboratory test abnormal [Unknown]
  - Alanine aminotransferase increased [Unknown]
  - Viral test positive [Unknown]
